FAERS Safety Report 25720827 (Version 2)
Quarter: 2025Q3

REPORT INFORMATION
  Report Type: Spontaneous
  Country: US (occurrence: US)
  Receive Date: 20250825
  Receipt Date: 20250917
  Transmission Date: 20251021
  Serious: Yes (Other)
  Sender: INTRA-CELLULAR THERAPIES
  Company Number: US-INTRA-CELLULAR THERAPIES, INC.-2025ICT01586

PATIENT
  Age: 58 Year
  Sex: Female

DRUGS (13)
  1. CAPLYTA [Suspect]
     Active Substance: LUMATEPERONE
     Indication: Depression
     Dosage: 21 MG, 1X/DAY
     Route: 048
     Dates: start: 20250609, end: 20250630
  2. CAPLYTA [Suspect]
     Active Substance: LUMATEPERONE
     Dosage: 42 MG, 1X/DAY
     Route: 048
     Dates: start: 20250701, end: 20250720
  3. CAPLYTA [Suspect]
     Active Substance: LUMATEPERONE
     Dosage: 21 MG, 1X/DAY
     Route: 048
     Dates: start: 20250721, end: 20250728
  4. VIIBRYD [Concomitant]
     Active Substance: VILAZODONE HYDROCHLORIDE
  5. ADDERALL [Concomitant]
     Active Substance: AMPHETAMINE ASPARTATE\AMPHETAMINE SULFATE\DEXTROAMPHETAMINE SACCHARATE\DEXTROAMPHETAMINE SULFATE
  6. ADZENYS ER [Concomitant]
     Active Substance: AMPHETAMINE
  7. AMITRIPTYLINE HYDROCHLORIDE [Concomitant]
     Active Substance: AMITRIPTYLINE HYDROCHLORIDE
  8. VALBENAZINE [Concomitant]
     Active Substance: VALBENAZINE
  9. MOUNJARO [Concomitant]
     Active Substance: TIRZEPATIDE
  10. VITAMIN D3 [Concomitant]
     Active Substance: CHOLECALCIFEROL
  11. ESTROGENS\TESTOSTERONE [Concomitant]
     Active Substance: ESTROGENS\TESTOSTERONE
  12. VITAMIN B12 [Concomitant]
     Active Substance: CYANOCOBALAMIN
  13. PROGESTERONE [Concomitant]
     Active Substance: PROGESTERONE

REACTIONS (7)
  - Syncope [Recovered/Resolved]
  - Suicidal ideation [Unknown]
  - Malaise [Unknown]
  - Dizziness [Recovered/Resolved]
  - Abdominal discomfort [Unknown]
  - Tremor [Unknown]
  - Off label use [Recovered/Resolved]

NARRATIVE: CASE EVENT DATE: 20250609
